FAERS Safety Report 8076015-1 (Version None)
Quarter: 2012Q1

REPORT INFORMATION
  Report Type: 
  Country: None (occurrence: None)
  Receive Date: 20120127
  Receipt Date: 20110415
  Transmission Date: 20120608
  Serious: No
  Sender: FDA-Public Use
  Company Number: US-GLAXOSMITHKLINE-A0923815A

PATIENT
  Age: 41 Year
  Sex: Male
  Weight: 88.2 kg

DRUGS (4)
  1. CHANTIX [Suspect]
     Indication: EX-TOBACCO USER
     Dosage: .5MG PER DAY
     Route: 048
  2. NO CONCURRENT MEDICATION [Concomitant]
  3. WELLBUTRIN [Suspect]
     Indication: DEPRESSION
     Route: 048
  4. CHANTIX [Suspect]
     Dosage: 1MG TWICE PER DAY
     Route: 048

REACTIONS (2)
  - CARDIAC FLUTTER [None]
  - DEPRESSION [None]
